FAERS Safety Report 24128333 (Version 1)
Quarter: 2024Q3

REPORT INFORMATION
  Report Type: Report from Study
  Country: MX (occurrence: MX)
  Receive Date: 20240723
  Receipt Date: 20240723
  Transmission Date: 20241017
  Serious: Yes (Hospitalization, Other)
  Sender: NOVARTIS
  Company Number: MX-002147023-NVSC2024MX149652

PATIENT
  Sex: Male
  Weight: 70 kg

DRUGS (1)
  1. TASIGNA [Suspect]
     Active Substance: NILOTINIB
     Indication: Chronic myeloid leukaemia
     Dosage: 600 MG, QD (2 CAPSULES OF 200 MG IN THE MORNING AND 1 CAPSULE OF 200 MG AT NIGHT)
     Route: 048

REACTIONS (6)
  - Cardiac disorder [Unknown]
  - Hypertension [Recovering/Resolving]
  - Hypertensive crisis [Unknown]
  - Chronic myeloid leukaemia recurrent [Unknown]
  - Stress [Unknown]
  - Off label use [Unknown]
